FAERS Safety Report 7442294-4 (Version None)
Quarter: 2011Q2

REPORT INFORMATION
  Report Type: 
  Country: None (occurrence: None)
  Receive Date: 20110428
  Receipt Date: 20110425
  Transmission Date: 20111010
  Serious: Yes (Death, Hospitalization)
  Sender: FDA-Public Use
  Company Number: US-ELI_LILLY_AND_COMPANY-US201103008492

PATIENT
  Sex: Female
  Weight: 68.481 kg

DRUGS (15)
  1. GEMCITABINE HYDROCHLORIDE [Suspect]
     Indication: BREAST CANCER METASTATIC
     Dosage: 1936 MG, UNK
     Route: 042
     Dates: start: 20100928, end: 20110324
  2. PANITUMUMAB [Suspect]
     Indication: BREAST CANCER METASTATIC
     Dosage: 409 MG, UNK
     Route: 042
     Dates: start: 20100928, end: 20110324
  3. DOXYCYCLINE HYCLATE [Concomitant]
     Indication: INFECTION
     Dosage: UNK, BID ONE TAB
     Dates: start: 20110301
  4. NEULASTA [Concomitant]
     Dosage: UNK
     Dates: start: 20110325
  5. MACROBID [Concomitant]
     Dosage: 100 MG, BID
     Route: 048
     Dates: start: 20110324
  6. FLEXERIL [Concomitant]
     Indication: MUSCLE SPASMS
     Dosage: 10 MG, EACH MORNING
     Dates: start: 20101228
  7. CARBOPLATIN [Suspect]
     Indication: BREAST CANCER METASTATIC
     Dosage: 167 MG, UNK
     Route: 042
     Dates: start: 20100928, end: 20110324
  8. COMBIVENT [Concomitant]
     Indication: BRONCHOSPASM
     Dosage: 2 PUFFS, EVERY 4 HRS
     Dates: start: 20110411
  9. MAGNESIUM GLUCONATE [Concomitant]
     Indication: SUPPLEMENTATION THERAPY
     Dosage: UNK, BID ONE
     Route: 048
     Dates: start: 20110318
  10. NADOLOL [Concomitant]
     Indication: ARRHYTHMIA
     Dosage: 40 MG, EACH MORNING
     Dates: start: 20091013
  11. PERCOCET [Concomitant]
     Indication: PAIN
     Dosage: UNK, PRN 1-2
     Dates: start: 20110210
  12. CALCIUM +VIT D [Concomitant]
     Indication: SUPPLEMENTATION THERAPY
     Dosage: 500 MG, BID
     Dates: start: 20101123
  13. ALBUTEROL [Concomitant]
     Dosage: UNK, PRN
     Dates: start: 20110118
  14. KAPIDEX [Concomitant]
     Indication: REFLUX GASTRITIS
     Dosage: 60 MG, EACH MORNING
     Route: 048
     Dates: start: 20091013
  15. MIRALAX [Concomitant]
     Indication: CONSTIPATION
     Dosage: 17 G, QD
     Dates: start: 20110411

REACTIONS (4)
  - CHRONIC OBSTRUCTIVE PULMONARY DISEASE [None]
  - PNEUMONIA [None]
  - DYSPNOEA [None]
  - DISEASE PROGRESSION [None]
